FAERS Safety Report 7826590-4 (Version None)
Quarter: 2011Q4

REPORT INFORMATION
  Report Type: 
  Country: None (occurrence: None)
  Receive Date: 20111020
  Receipt Date: 20110928
  Transmission Date: 20120403
  Serious: No
  Sender: FDA-Public Use
  Company Number: US-MYLANLABS-2011S1020377

PATIENT
  Age: 83 Year
  Sex: Male

DRUGS (6)
  1. FINASTERIDE [Suspect]
     Indication: PROSTATIC SPECIFIC ANTIGEN ABNORMAL
     Route: 048
     Dates: start: 20110727
  2. TAMSULOSIN HCL [Suspect]
     Indication: PROSTATIC SPECIFIC ANTIGEN ABNORMAL
     Route: 048
     Dates: start: 20110727
  3. M.V.I. [Concomitant]
     Route: 048
  4. CALCIUM CARBONATE [Concomitant]
     Route: 048
  5. URSODIL [Concomitant]
     Indication: LIVER DISORDER
     Dosage: TAKES FOUR EVERY DAY.
     Route: 048
     Dates: start: 20090101
  6. ACTONEL [Concomitant]
     Route: 048

REACTIONS (1)
  - FAECES DISCOLOURED [None]
